FAERS Safety Report 13282319 (Version 3)
Quarter: 2019Q3

REPORT INFORMATION
  Report Type: Spontaneous
  Country: US (occurrence: US)
  Receive Date: 20170301
  Receipt Date: 20190806
  Transmission Date: 20191004
  Serious: Yes (Hospitalization, Other)
  Sender: FDA-Public Use
  Company Number: US-009507513-1702USA011511

PATIENT
  Age: 18 Year
  Sex: Female
  Weight: 68 kg

DRUGS (19)
  1. DEXAMETHASONE. [Suspect]
     Active Substance: DEXAMETHASONE
     Dosage: 4 MG, DAILY
     Route: 048
     Dates: start: 20170204, end: 20170205
  2. PLACEBO [Suspect]
     Active Substance: UNSPECIFIED INGREDIENT
     Dosage: UNK, EVERY 12 HOURS
     Route: 042
     Dates: start: 20170125, end: 20170125
  3. ESOMEPRAZOLE MAGNESIUM. [Concomitant]
     Active Substance: ESOMEPRAZOLE MAGNESIUM
     Indication: GASTROOESOPHAGEAL REFLUX PROPHYLAXIS
     Dosage: UNK (FORMULATION: PROLONGED-RELEASE CAPSULE)
     Dates: start: 20170127
  4. DEXAMETHASONE. [Suspect]
     Active Substance: DEXAMETHASONE
     Indication: DELAYED HAEMOLYTIC TRANSFUSION REACTION
     Dosage: 10 MG, DAILY
     Route: 048
     Dates: start: 20170126, end: 20170129
  5. PLACEBO [Suspect]
     Active Substance: UNSPECIFIED INGREDIENT
     Dosage: UNK, EVERY 12 HOURS
     Route: 042
     Dates: start: 20170124, end: 20170124
  6. PLACEBO [Suspect]
     Active Substance: UNSPECIFIED INGREDIENT
     Dosage: UNK, EVERY 12 HOURS
     Route: 042
     Dates: start: 20170128, end: 20170128
  7. ELAVIL [Concomitant]
     Active Substance: AMITRIPTYLINE HYDROCHLORIDE
     Indication: HEADACHE
     Dosage: UNK
     Dates: start: 20160127
  8. DEXAMETHASONE. [Suspect]
     Active Substance: DEXAMETHASONE
     Dosage: 8 MG, DAILY
     Route: 048
     Dates: start: 20170131, end: 20170201
  9. DEXAMETHASONE. [Suspect]
     Active Substance: DEXAMETHASONE
     Dosage: 6 MG, DAILY
     Route: 048
     Dates: start: 20170202, end: 20170203
  10. FLONASE [Concomitant]
     Active Substance: FLUTICASONE PROPIONATE
     Indication: SNORING
     Dosage: UNK
     Dates: start: 20120324
  11. FOLIC ACID. [Concomitant]
     Active Substance: FOLIC ACID
     Indication: SICKLE CELL ANAEMIA
     Dosage: UNK
     Dates: start: 20120324
  12. HYDROXYUREA. [Concomitant]
     Active Substance: HYDROXYUREA
     Indication: SICKLE CELL ANAEMIA
     Dosage: UNK
     Dates: start: 20140123
  13. DEXAMETHASONE. [Suspect]
     Active Substance: DEXAMETHASONE
     Dosage: 10 MG, DAILY
     Route: 048
     Dates: start: 20170130, end: 20170130
  14. PLACEBO [Suspect]
     Active Substance: UNSPECIFIED INGREDIENT
     Dosage: UNK, EVERY 12 HOURS
     Route: 042
     Dates: start: 20170127, end: 20170127
  15. PLACEBO [Suspect]
     Active Substance: UNSPECIFIED INGREDIENT
     Indication: SICKLE CELL ANAEMIA WITH CRISIS
     Dosage: UNK, EVERY 12 HOURS
     Route: 042
     Dates: start: 20170121, end: 20170121
  16. PLACEBO [Suspect]
     Active Substance: UNSPECIFIED INGREDIENT
     Dosage: UNK, EVERY 12 HOURS
     Route: 042
     Dates: start: 20170123, end: 20170123
  17. DEXAMETHASONE. [Suspect]
     Active Substance: DEXAMETHASONE
     Dosage: 2 MG, DAILY
     Route: 048
     Dates: start: 20170206, end: 20170207
  18. PLACEBO [Suspect]
     Active Substance: UNSPECIFIED INGREDIENT
     Dosage: UNK, EVERY 12 HOURS
     Route: 042
     Dates: start: 20170122, end: 20170122
  19. PLACEBO [Suspect]
     Active Substance: UNSPECIFIED INGREDIENT
     Dosage: UNK, EVERY 12 HOURS
     Route: 042
     Dates: start: 20170126, end: 20170126

REACTIONS (2)
  - Pneumonia [Recovered/Resolved]
  - Sickle cell anaemia with crisis [Recovered/Resolved]

NARRATIVE: CASE EVENT DATE: 20170206
